FAERS Safety Report 6596083-3 (Version None)
Quarter: 2010Q1

REPORT INFORMATION
  Report Type: 
  Country: None (occurrence: None)
  Receive Date: 20100204
  Receipt Date: 20091231
  Transmission Date: 20100710
  Serious: No
  Sender: FDA-Public Use
  Company Number: 2009-11240

PATIENT
  Age: 58 Year
  Sex: Male

DRUGS (1)
  1. RAPAFLO [Suspect]
     Indication: POLLAKIURIA
     Dosage: 1 CAPSUL, DAILY, ORAL
     Route: 048
     Dates: start: 20091224

REACTIONS (4)
  - BACK PAIN [None]
  - EJACULATION DISORDER [None]
  - HEADACHE [None]
  - NASAL CONGESTION [None]
